FAERS Safety Report 8445250-2 (Version None)
Quarter: 2012Q2

REPORT INFORMATION
  Report Type: 
  Country: None (occurrence: None)
  Receive Date: 20120605
  Receipt Date: 20120521
  Transmission Date: 20120825
  Serious: Yes (Death)
  Sender: FDA-Public Use
  Company Number: WAES 1202USA00472

PATIENT
  Age: 98 Year
  Sex: Male

DRUGS (4)
  1. NORVASC [Concomitant]
  2. JANUVIA [Suspect]
     Indication: TYPE 2 DIABETES MELLITUS
     Dosage: 50 MG/DAILY PO;
     Route: 048
     Dates: start: 20110803, end: 20120129
  3. AMARYL [Concomitant]
  4. VOGLIBOSE [Concomitant]

REACTIONS (2)
  - BLOOD GLUCOSE INCREASED [None]
  - SUDDEN DEATH [None]
